FAERS Safety Report 6616929-X (Version None)
Quarter: 2010Q1

REPORT INFORMATION
  Report Type: 
  Country: None (occurrence: None)
  Receive Date: 20100301
  Receipt Date: 20100212
  Transmission Date: 20100710
  Serious: Yes (Death)
  Sender: FDA-Public Use
  Company Number: 1000012145

PATIENT
  Age: 55 Year
  Sex: Female

DRUGS (8)
  1. CITALOPRAM HYDROBROMIDE [Suspect]
  2. ACETAMINOPHEN AND CODEINE PHOSPHATE [Suspect]
  3. MARIJUANA [Suspect]
  4. TOPIRAMATE [Suspect]
  5. PREGABALIN [Suspect]
  6. NAPROXEN [Suspect]
  7. OPIOID [Suspect]
  8. ANTICONVULSANT, PYROLIDINONE DERIVATIVE [Suspect]

REACTIONS (1)
  - COMPLETED SUICIDE [None]
